FAERS Safety Report 10736665 (Version 2)
Quarter: 2015Q3

REPORT INFORMATION
  Report Type: Spontaneous
  Country: US (occurrence: US)
  Receive Date: 20150126
  Receipt Date: 20150923
  Transmission Date: 20151125
  Serious: Yes (Life-Threatening, Hospitalization, Other)
  Sender: FDA-Public Use
  Company Number: US-ASTRAZENECA-2015SE07778

PATIENT
  Age: 50 Year
  Sex: Female
  Weight: 112.9 kg

DRUGS (6)
  1. SYMLIN [Suspect]
     Active Substance: PRAMLINTIDE ACETATE
     Route: 058
  2. VICTOZA [Concomitant]
     Active Substance: LIRAGLUTIDE
  3. LOSARTAN. [Concomitant]
     Active Substance: LOSARTAN
     Indication: HYPERTENSION
  4. CYMBALTA [Concomitant]
     Active Substance: DULOXETINE HYDROCHLORIDE
  5. BYDUREON [Suspect]
     Active Substance: EXENATIDE
     Indication: TYPE 2 DIABETES MELLITUS
     Route: 058
     Dates: start: 20141217, end: 201412
  6. BYETTA [Suspect]
     Active Substance: EXENATIDE
     Route: 058
     Dates: end: 201506

REACTIONS (6)
  - Angioedema [Unknown]
  - Anaphylactic reaction [Recovering/Resolving]
  - Pruritus [Unknown]
  - Swelling [Unknown]
  - Pancreatitis [Unknown]
  - Skin exfoliation [Unknown]

NARRATIVE: CASE EVENT DATE: 201412
